FAERS Safety Report 23379310 (Version 2)
Quarter: 2024Q1

REPORT INFORMATION
  Report Type: Spontaneous
  Country: CN (occurrence: CN)
  Receive Date: 20240108
  Receipt Date: 20240220
  Transmission Date: 20240410
  Serious: Yes (Other)
  Sender: FDA-Public Use
  Company Number: CN-KYOWAKIRIN-2024KK000125

PATIENT

DRUGS (2)
  1. TOREMIFENE [Suspect]
     Active Substance: TOREMIFENE
     Indication: Hormone receptor positive breast cancer
     Dosage: 40 MG
     Route: 048
     Dates: start: 20220324
  2. TOREMIFENE [Suspect]
     Active Substance: TOREMIFENE
     Dosage: UNK
     Route: 065
     Dates: start: 20220531

REACTIONS (1)
  - Mesenteric artery thrombosis [Recovered/Resolved]

NARRATIVE: CASE EVENT DATE: 20220530
